FAERS Safety Report 15326020 (Version 2)
Quarter: 2018Q3

REPORT INFORMATION
  Report Type: Spontaneous
  Country: BR (occurrence: BR)
  Receive Date: 20180828
  Receipt Date: 20180905
  Transmission Date: 20181010
  Serious: Yes (Life-Threatening, Hospitalization, Other)
  Sender: FDA-Public Use
  Company Number: BR-PFIZER INC-2018345559

PATIENT
  Sex: Female

DRUGS (1)
  1. FRONTAL [Suspect]
     Active Substance: ALPRAZOLAM
     Indication: ANXIETY
     Dosage: 4 TABLETS, DAILY

REACTIONS (5)
  - Drug dependence [Not Recovered/Not Resolved]
  - Panic attack [Recovered/Resolved]
  - Myocardial infarction [Recovered/Resolved]
  - Cardiac arrest [Unknown]
  - Periarthritis [Recovered/Resolved]

NARRATIVE: CASE EVENT DATE: 2013
